FAERS Safety Report 24173700 (Version 1)
Quarter: 2024Q3

REPORT INFORMATION
  Report Type: Report from Study
  Country: US (occurrence: None)
  Receive Date: 20240805
  Receipt Date: 20240805
  Transmission Date: 20241016
  Serious: Yes (Hospitalization)
  Sender: ASTRAZENECA
  Company Number: 2023A135271

PATIENT
  Age: 15055 Day
  Sex: Female

DRUGS (2)
  1. LYNPARZA [Suspect]
     Active Substance: OLAPARIB
     Indication: Prophylaxis of nausea and vomiting
     Route: 048
     Dates: start: 20181116
  2. LYNPARZA [Suspect]
     Active Substance: OLAPARIB
     Indication: Metastases to breast
     Route: 048
     Dates: start: 20181116

REACTIONS (1)
  - Aphonia [Unknown]

NARRATIVE: CASE EVENT DATE: 20230609
